FAERS Safety Report 9671250 (Version 2)
Quarter: 2013Q4

REPORT INFORMATION
  Report Type: Spontaneous
  Country: JP (occurrence: JP)
  Receive Date: 20131106
  Receipt Date: 20131210
  Transmission Date: 20140711
  Serious: Yes (Life-Threatening)
  Sender: FDA-Public Use
  Company Number: JP-TEVA-440194ISR

PATIENT
  Age: 65 Year
  Sex: Male

DRUGS (1)
  1. SAXIZON FOR INJECTION 100MG [Suspect]
     Indication: ASTHMA
     Dosage: 20 MILLIGRAM DAILY;
     Route: 042
     Dates: start: 20131021, end: 20131021

REACTIONS (1)
  - Shock [Recovered/Resolved]
